FAERS Safety Report 15760436 (Version 1)
Quarter: 2018Q4

REPORT INFORMATION
  Report Type: Spontaneous
  Country: US (occurrence: US)
  Receive Date: 20181224
  Receipt Date: 20181224
  Transmission Date: 20190205
  Serious: Yes (Other)
  Sender: FDA-Public Use
  Company Number: None

PATIENT
  Age: 25 Year
  Sex: Male
  Weight: 74.25 kg

DRUGS (2)
  1. CHLORASEPTIC SORE THROAT [Suspect]
     Active Substance: PHENOL
     Indication: APHTHOUS ULCER
     Dosage: ?          QUANTITY:1 SPRAY(S);?
     Route: 048
     Dates: start: 20181220, end: 20181224
  2. CHLORASEPTIC SORE THROAT [Suspect]
     Active Substance: PHENOL
     Indication: PAIN
     Dosage: ?          QUANTITY:1 SPRAY(S);?
     Route: 048
     Dates: start: 20181220, end: 20181224

REACTIONS (1)
  - Diarrhoea [None]

NARRATIVE: CASE EVENT DATE: 20181220
